FAERS Safety Report 7622610-0 (Version None)
Quarter: 2011Q3

REPORT INFORMATION
  Report Type: 
  Country: None (occurrence: None)
  Receive Date: 20110719
  Receipt Date: 20110719
  Transmission Date: 20111222
  Serious: Yes (Hospitalization, Other)
  Sender: FDA-Public Use
  Company Number: None

PATIENT
  Age: 72 Year
  Sex: Male
  Weight: 111.5849 kg

DRUGS (3)
  1. PRADAXA [Suspect]
     Indication: ATRIAL FIBRILLATION
     Dosage: ONE CAPSULE TWICE A DAY PO
     Route: 048
     Dates: start: 20110513, end: 20110624
  2. WARFARIN SODIUM [Concomitant]
  3. PRILOSEC [Concomitant]

REACTIONS (6)
  - OESOPHAGEAL ULCER [None]
  - WEIGHT DECREASED [None]
  - GASTRIC ULCER [None]
  - DIARRHOEA [None]
  - DYSPHAGIA [None]
  - ABDOMINAL DISCOMFORT [None]
